FAERS Safety Report 7606853-8 (Version None)
Quarter: 2011Q3

REPORT INFORMATION
  Report Type: 
  Country: None (occurrence: None)
  Receive Date: 20110713
  Receipt Date: 20110705
  Transmission Date: 20111222
  Serious: Yes (Hospitalization)
  Sender: FDA-Public Use
  Company Number: US-GLAXOSMITHKLINE-A0936361A

PATIENT
  Sex: Female
  Weight: 90.7 kg

DRUGS (10)
  1. OXYCODONE [Concomitant]
     Route: 048
  2. TRACLEER [Concomitant]
     Route: 048
  3. WARFARIN SODIUM [Concomitant]
     Route: 048
  4. REVATIO [Concomitant]
     Dosage: 20MG UNKNOWN
     Route: 048
  5. FLOLAN [Suspect]
     Indication: COR PULMONALE CHRONIC
     Dosage: 18.5NGKM UNKNOWN
     Route: 042
     Dates: start: 20101213
  6. FLOLAN [Suspect]
     Indication: COR PULMONALE CHRONIC
     Route: 042
     Dates: start: 20101213
  7. DIGOXIN [Concomitant]
     Route: 048
  8. COMPAZINE [Concomitant]
     Route: 048
  9. LASIX [Concomitant]
     Route: 048
  10. MAGNESIUM [Concomitant]
     Route: 048

REACTIONS (1)
  - STAPHYLOCOCCAL INFECTION [None]
